FAERS Safety Report 16469608 (Version 1)
Quarter: 2019Q2

REPORT INFORMATION
  Report Type: Spontaneous
  Country: US (occurrence: US)
  Receive Date: 20190624
  Receipt Date: 20190624
  Transmission Date: 20190711
  Serious: No
  Sender: FDA-Public Use
  Company Number: US-GLAXOSMITHKLINE-US2019110359

PATIENT
  Age: 68 Year
  Sex: Female

DRUGS (1)
  1. ABREVA [Suspect]
     Active Substance: DOCOSANOL
     Indication: ORAL HERPES
     Dosage: 5 TIMES A DAY, QD
     Route: 061
     Dates: start: 20190601, end: 20190613

REACTIONS (1)
  - Drug ineffective [Unknown]
